FAERS Safety Report 9731953 (Version 1)
Quarter: 2013Q4

REPORT INFORMATION
  Report Type: Report from Study
  Country: US (occurrence: US)
  Receive Date: 20131205
  Receipt Date: 20131205
  Transmission Date: 20140711
  Serious: Yes (Hospitalization)
  Sender: FDA-Public Use
  Company Number: PHEH2013US025190

PATIENT
  Age: 57 Year
  Sex: Female

DRUGS (2)
  1. TOBI PODHALER [Suspect]
     Indication: BRONCHIECTASIS
     Dosage: 112 MG, BID
     Dates: start: 20131015, end: 20131020
  2. TOBI PODHALER [Suspect]
     Indication: BRONCHIOLITIS

REACTIONS (1)
  - Malaise [Recovered/Resolved]
